FAERS Safety Report 8818609 (Version 1)
Quarter: 2012Q4

REPORT INFORMATION
  Report Type: 
  Country: US (occurrence: US)
  Receive Date: 20121002
  Receipt Date: 20121002
  Transmission Date: 20130627
  Serious: No
  Sender: FDA-Public Use
  Company Number: US-COVIDIEN/TYCO HEALTHCARE/MALLINCKRODT-T201200732

PATIENT

DRUGS (3)
  1. HYDROMORPHONE [Suspect]
     Indication: BACK PAIN
     Dosage: 4 mg, qd
     Dates: start: 20110616, end: 20110622
  2. HYDROMORPHONE [Suspect]
     Dosage: 2 mg, bid
     Dates: start: 20110607, end: 20110614
  3. HYDROMORPHONE [Suspect]
     Dosage: 4 mg, bid
     Dates: start: 20110615, end: 20110615

REACTIONS (1)
  - Fatigue [Recovered/Resolved]
